FAERS Safety Report 6850060-3 (Version None)
Quarter: 2010Q3

REPORT INFORMATION
  Report Type: 
  Country: None (occurrence: None)
  Receive Date: 20100716
  Receipt Date: 20100710
  Transmission Date: 20110219
  Serious: Yes (Hospitalization)
  Sender: FDA-Public Use
  Company Number: TR-ABBOTT-10P-161-0656329-00

PATIENT
  Age: 72 Year
  Sex: Female

DRUGS (1)
  1. TARKA [Suspect]
     Indication: HYPERTENSION
     Dosage: 1 X 2/180MG
     Route: 048
     Dates: start: 20100705, end: 20100708

REACTIONS (3)
  - HYPOTENSION [None]
  - NAUSEA [None]
  - VOMITING [None]
